FAERS Safety Report 15962112 (Version 1)
Quarter: 2019Q1

REPORT INFORMATION
  Report Type: Spontaneous
  Country: US (occurrence: US)
  Receive Date: 20190214
  Receipt Date: 20190214
  Transmission Date: 20190417
  Serious: No
  Sender: FDA-Public Use
  Company Number: None

PATIENT
  Age: 96 Year
  Sex: Female
  Weight: 56.25 kg

DRUGS (19)
  1. LORATADINE. [Concomitant]
     Active Substance: LORATADINE
  2. LEVOTHYROXINE. [Concomitant]
     Active Substance: LEVOTHYROXINE
  3. LOPERAMIDE [Concomitant]
     Active Substance: LOPERAMIDE
  4. MELOXICAM. [Concomitant]
     Active Substance: MELOXICAM
  5. PREVALITE [Concomitant]
     Active Substance: CHOLESTYRAMINE
  6. VITAMIN B12 [Concomitant]
     Active Substance: CYANOCOBALAMIN
  7. VITAMIN E [Concomitant]
     Active Substance: .ALPHA.-TOCOPHEROL
  8. ACETAMINOPHEN. [Concomitant]
     Active Substance: ACETAMINOPHEN
  9. AMLODIPINE [Concomitant]
     Active Substance: AMLODIPINE BESYLATE
  10. FLUTICASONE. [Concomitant]
     Active Substance: FLUTICASONE
  11. OCUVITE [Concomitant]
     Active Substance: VITAMINS
  12. SERTRALINE [Concomitant]
     Active Substance: SERTRALINE HYDROCHLORIDE
  13. WELCHOL [Concomitant]
     Active Substance: COLESEVELAM HYDROCHLORIDE
  14. MELATONIN [Concomitant]
     Active Substance: MELATONIN
  15. PROCHLORPERAZINE. [Concomitant]
     Active Substance: PROCHLORPERAZINE
  16. VITAMIN D3 [Concomitant]
     Active Substance: CHOLECALCIFEROL
  17. TARCEVA [Suspect]
     Active Substance: ERLOTINIB HYDROCHLORIDE
     Indication: LUNG NEOPLASM MALIGNANT
     Route: 048
     Dates: start: 20180822, end: 20190123
  18. IBUPROFEN. [Concomitant]
     Active Substance: IBUPROFEN
  19. MULTIVITAMIN [Concomitant]
     Active Substance: VITAMINS

REACTIONS (2)
  - Oesophageal ulcer [None]
  - Epigastric discomfort [None]

NARRATIVE: CASE EVENT DATE: 20190123
